FAERS Safety Report 9256031 (Version 1)
Quarter: 2013Q2

REPORT INFORMATION
  Report Type: Report from Study
  Country: AU (occurrence: AU)
  Receive Date: 20130425
  Receipt Date: 20130425
  Transmission Date: 20140414
  Serious: Yes (Hospitalization)
  Sender: FDA-Public Use
  Company Number: PHHY2013AU006350

PATIENT
  Age: 36 Year
  Sex: Male
  Weight: 75 kg

DRUGS (12)
  1. CLOZARIL [Suspect]
     Indication: SCHIZOPHRENIA, PARANOID TYPE
     Dosage: 375 MG, UNK
     Dates: start: 19960820
  2. CLOZARIL [Suspect]
     Dosage: 300 MG, UNK
  3. CLOZARIL [Suspect]
     Dosage: 400 MG, UNK
  4. CLOZARIL [Suspect]
     Dosage: 375 MG, UNK
  5. METOPROLOL [Suspect]
     Indication: SINUS TACHYCARDIA
     Dosage: 25 MG, BID
     Dates: start: 20130117
  6. METOPROLOL [Suspect]
     Dosage: 50 MG, BID
  7. TELMISARTAN [Concomitant]
     Indication: HYPERTENSION
     Dosage: 40 MG, QD
  8. CHOLECALCIFEROL [Concomitant]
     Indication: VITAMIN D DECREASED
     Dosage: 25 UG, QD
  9. ATORVASTATIN [Concomitant]
     Indication: DYSLIPIDAEMIA
     Dosage: 40 MG, NOCTE
  10. DIAZEPAM [Concomitant]
     Dosage: 10 MG, NOCTE
  11. TEMAZEPAM [Concomitant]
     Dosage: UNK UKN, PRN
  12. OLANZAPINE [Concomitant]
     Dosage: UNK UKN, PRN

REACTIONS (7)
  - Tachycardia [Unknown]
  - Schizophrenia [Unknown]
  - Venous oxygen saturation increased [Unknown]
  - PO2 increased [Unknown]
  - Blood creatine phosphokinase increased [Unknown]
  - Somnolence [Unknown]
  - Drug ineffective [Unknown]
